FAERS Safety Report 8638146 (Version 7)
Quarter: 2012Q4

REPORT INFORMATION
  Report Type: 
  Country: US (occurrence: US)
  Receive Date: 20120627
  Receipt Date: 20121126
  Transmission Date: 20130627
  Serious: Yes (Disabling, Other)
  Sender: FDA-Public Use
  Company Number: US-JNJFOC-20120609823

PATIENT
  Sex: Female
  Weight: 113.4 kg

DRUGS (11)
  1. REMICADE [Suspect]
     Indication: CROHN^S DISEASE
     Route: 042
  2. REMICADE [Suspect]
     Indication: CROHN^S DISEASE
     Dosage: started prior to 2001
     Route: 042
  3. REMICADE [Suspect]
     Indication: CROHN^S DISEASE
     Route: 042
     Dates: start: 20120726
  4. WELLBUTRIN XL [Concomitant]
     Indication: FATIGUE
     Route: 048
  5. DEXILANT [Concomitant]
     Indication: HYPERCHLORHYDRIA
     Route: 048
  6. PAXIL [Concomitant]
     Indication: FATIGUE
     Route: 048
  7. XYZAL [Concomitant]
     Indication: MULTIPLE ALLERGIES
     Route: 065
  8. GLIPIZIDE XL [Concomitant]
     Indication: DIABETES MELLITUS
     Route: 065
  9. VITAMIN B12 [Concomitant]
     Indication: VITAMIN B12 DEFICIENCY
     Route: 065
  10. FOLIC ACID [Concomitant]
     Indication: FOLATE DEFICIENCY
     Route: 065
  11. MULTIVITAMINS [Concomitant]
     Route: 065

REACTIONS (6)
  - Dementia [Unknown]
  - Amnesia [Not Recovered/Not Resolved]
  - Fistula [Not Recovered/Not Resolved]
  - Cognitive disorder [Not Recovered/Not Resolved]
  - Blood glucose increased [Not Recovered/Not Resolved]
  - Fatigue [Not Recovered/Not Resolved]
